FAERS Safety Report 18608578 (Version 1)
Quarter: 2020Q4

REPORT INFORMATION
  Report Type: Spontaneous
  Country: US (occurrence: US)
  Receive Date: 20201213
  Receipt Date: 20201213
  Transmission Date: 20210114
  Serious: No
  Sender: FDA-Public Use
  Company Number: US-LUPIN PHARMACEUTICALS INC.-2020-03645

PATIENT
  Sex: Male

DRUGS (1)
  1. SERTRALINE HYDROCHLORIDE TABLETS USP, 25 MG [Suspect]
     Active Substance: SERTRALINE HYDROCHLORIDE
     Indication: PRODUCT USED FOR UNKNOWN INDICATION
     Dosage: UNK
     Route: 065
     Dates: start: 20200708

REACTIONS (8)
  - Condition aggravated [Unknown]
  - Malaise [Unknown]
  - Musculoskeletal disorder [Unknown]
  - Feeling abnormal [None]
  - Dysarthria [Unknown]
  - Slow speech [Unknown]
  - Headache [Unknown]
  - Vein disorder [Unknown]
